FAERS Safety Report 7978708-0 (Version None)
Quarter: 2011Q4

REPORT INFORMATION
  Report Type: 
  Country: None (occurrence: None)
  Receive Date: 20111206
  Receipt Date: 20111201
  Transmission Date: 20120403
  Serious: Yes (Hospitalization, Disabling, Other)
  Sender: FDA-Public Use
  Company Number: 2011SP000367

PATIENT
  Age: 26 Year
  Sex: Female
  Weight: 69.8539 kg

DRUGS (1)
  1. NUVARING [Suspect]
     Indication: CONTRACEPTION
     Dates: start: 20080101, end: 20090105

REACTIONS (17)
  - FLANK PAIN [None]
  - PULMONARY EMBOLISM [None]
  - HYPOAESTHESIA [None]
  - IMPAIRED WORK ABILITY [None]
  - PARAESTHESIA [None]
  - NEPHROLITHIASIS [None]
  - CONFUSIONAL STATE [None]
  - THROMBOPHLEBITIS SUPERFICIAL [None]
  - ABORTION SPONTANEOUS [None]
  - BLOOD URINE PRESENT [None]
  - INTERNATIONAL NORMALISED RATIO DECREASED [None]
  - PREGNANCY [None]
  - MUSCULOSKELETAL CHEST PAIN [None]
  - DEEP VEIN THROMBOSIS [None]
  - UPPER RESPIRATORY TRACT INFECTION [None]
  - ACTIVITIES OF DAILY LIVING IMPAIRED [None]
  - HEADACHE [None]
